FAERS Safety Report 8503400-3 (Version None)
Quarter: 2012Q3

REPORT INFORMATION
  Report Type: 
  Country: None (occurrence: None)
  Receive Date: 20120711
  Receipt Date: 20120704
  Transmission Date: 20120928
  Serious: Yes (Hospitalization)
  Sender: FDA-Public Use
  Company Number: FR-UCBSA-061108

PATIENT
  Age: 52 Year
  Sex: Male

DRUGS (3)
  1. URBANYL [Concomitant]
     Indication: EPILEPSY
     Route: 048
     Dates: start: 20120301
  2. KEPPRA [Suspect]
     Indication: EPILEPSY
     Dosage: 2 G DAILY
     Route: 048
     Dates: start: 20120302, end: 20120301
  3. PHENOBARBITAL TAB [Suspect]
     Indication: EPILEPSY
     Route: 048
     Dates: start: 20120301, end: 20120401

REACTIONS (3)
  - SKIN EXFOLIATION [None]
  - DRUG RASH WITH EOSINOPHILIA AND SYSTEMIC SYMPTOMS [None]
  - HEPATITIS [None]
